FAERS Safety Report 18166168 (Version 1)
Quarter: 2020Q3

REPORT INFORMATION
  Report Type: Spontaneous
  Country: DE (occurrence: DE)
  Receive Date: 20200819
  Receipt Date: 20200819
  Transmission Date: 20201103
  Serious: Yes (Hospitalization)
  Sender: FDA-Public Use
  Company Number: DE-TEVA-2020-DE-1815490

PATIENT
  Age: 17 Year
  Sex: Female

DRUGS (5)
  1. ARIPIPRAZOL [Suspect]
     Active Substance: ARIPIPRAZOLE
     Indication: SUICIDAL IDEATION
     Dosage: 15 MG
     Route: 065
     Dates: start: 20190216
  2. ALKOHOL [Suspect]
     Active Substance: ALCOHOL
     Dosage: ADDITIONAL DRUG INFORMATION : 1 SPARKLING WINE
     Route: 065
     Dates: start: 20190216
  3. PANTOPRAZOL [Suspect]
     Active Substance: PANTOPRAZOLE SODIUM
     Indication: SUICIDAL IDEATION
     Dosage: 2 DOSAGE FORMS
     Route: 065
     Dates: start: 20190216
  4. MIRTAZAPIN [Suspect]
     Active Substance: MIRTAZAPINE
     Indication: SUICIDAL IDEATION
     Dosage: 60 MG
     Route: 065
     Dates: start: 20190216
  5. LEVOMEPROMAZIN [Suspect]
     Active Substance: LEVOMEPROMAZINE
     Indication: SUICIDAL IDEATION
     Dosage: 25 MG
     Route: 065
     Dates: start: 20190216

REACTIONS (2)
  - Toxicity to various agents [Unknown]
  - Intentional overdose [Unknown]

NARRATIVE: CASE EVENT DATE: 20190216
